FAERS Safety Report 7435119-4 (Version None)
Quarter: 2011Q2

REPORT INFORMATION
  Report Type: 
  Country: None (occurrence: None)
  Receive Date: 20110425
  Receipt Date: 20110412
  Transmission Date: 20111010
  Serious: Yes (Other)
  Sender: FDA-Public Use
  Company Number: PHFR2011GB01793

PATIENT
  Sex: Male

DRUGS (2)
  1. QUETIAPINE [Suspect]
     Dosage: UNK DF,
     Dates: end: 20110330
  2. CLOZARIL [Suspect]
     Indication: SCHIZOPHRENIA
     Dosage: 400 MG, UNK
     Route: 048
     Dates: start: 20001010, end: 20110308

REACTIONS (5)
  - NEUTROPENIA [None]
  - NEUTROPHIL COUNT DECREASED [None]
  - GOUT [None]
  - INSOMNIA [None]
  - WHITE BLOOD CELL COUNT DECREASED [None]
